FAERS Safety Report 15982669 (Version 2)
Quarter: 2019Q2

REPORT INFORMATION
  Report Type: Spontaneous
  Country: CA (occurrence: CA)
  Receive Date: 20190219
  Receipt Date: 20190531
  Transmission Date: 20190711
  Serious: Yes (Other)
  Sender: FDA-Public Use
  Company Number: CA-PFIZER INC-2019066029

PATIENT
  Age: 3 Year
  Sex: Male
  Weight: 14 kg

DRUGS (11)
  1. CARBOPLATIN. [Suspect]
     Active Substance: CARBOPLATIN
     Indication: NEUROBLASTOMA
     Dosage: 290.0 MG, UNK
     Route: 042
     Dates: start: 20121002, end: 20121005
  2. DOXORUBICIN HCL [Suspect]
     Active Substance: DOXORUBICIN HYDROCHLORIDE
     Indication: NEUROBLASTOMA
     Dosage: 16.0 MG, UNK
     Route: 042
     Dates: start: 20120405, end: 20120524
  3. CYCLOPHOSPHAMIDE. [Suspect]
     Active Substance: CYCLOPHOSPHAMIDE
     Indication: NEUROBLASTOMA
     Dosage: 250-1370MG
     Route: 042
     Dates: start: 20120301, end: 20120614
  4. ETOPOSIDE. [Suspect]
     Active Substance: ETOPOSIDE
     Indication: NEUROBLASTOMA
     Dosage: 115-125MG
     Route: 042
     Dates: start: 20120315, end: 20121005
  5. PROCYTOX [Suspect]
     Active Substance: CYCLOPHOSPHAMIDE
     Indication: NEUROBLASTOMA
     Dosage: 250-1370MG
     Route: 042
     Dates: start: 20120301, end: 20120614
  6. MELPHALAN. [Concomitant]
     Active Substance: MELPHALAN
     Dosage: 48 MG, UNK
     Route: 042
     Dates: start: 20121002, end: 20121004
  7. INTERLEUKIN-2 [Suspect]
     Active Substance: ALDESLEUKIN
     Indication: NEUROBLASTOMA
     Dosage: 2-3 MUI
     Route: 042
     Dates: start: 20130311, end: 20130510
  8. VINCRISTINE SULFATE. [Concomitant]
     Active Substance: VINCRISTINE SULFATE
     Dosage: UNK
     Route: 042
     Dates: start: 20110405, end: 20120524
  9. TOPOTECAN [Concomitant]
     Active Substance: TOPOTECAN HYDROCHLORIDE
     Dosage: 0.75 MG, UNK
     Route: 042
     Dates: start: 20120201, end: 20120227
  10. CISPLATIN. [Concomitant]
     Active Substance: CISPLATIN
     Dosage: 30-32 MG
     Route: 042
     Dates: start: 20120315, end: 20120429
  11. THIOTEPA. [Concomitant]
     Active Substance: THIOTEPA
     Dosage: 200 MG, UNK
     Route: 042
     Dates: start: 20120809, end: 20120811

REACTIONS (2)
  - Ejection fraction decreased [Recovered/Resolved]
  - Cardiotoxicity [Recovered/Resolved]
